FAERS Safety Report 8534819-2 (Version None)
Quarter: 2012Q3

REPORT INFORMATION
  Report Type: 
  Country: None (occurrence: None)
  Receive Date: 20120724
  Receipt Date: 20120711
  Transmission Date: 20120928
  Serious: Yes (Other)
  Sender: FDA-Public Use
  Company Number: US-009507513-1207USA002832

PATIENT

DRUGS (1)
  1. NEXPLANON [Suspect]
     Indication: CONTRACEPTION
     Dosage: UNK
     Route: 059

REACTIONS (6)
  - PREGNANCY WITH IMPLANT CONTRACEPTIVE [None]
  - ABORTION [None]
  - MATERNAL EXPOSURE DURING PREGNANCY [None]
  - UNINTENDED PREGNANCY [None]
  - IMPLANT SITE PAIN [None]
  - DRUG INEFFECTIVE [None]
